FAERS Safety Report 5094901-1 (Version None)
Quarter: 2006Q3

REPORT INFORMATION
  Report Type: 
  Country: None (occurrence: None)
  Receive Date: 20060728
  Receipt Date: 20060523
  Transmission Date: 20061208
  Serious: No
  Sender: FDA-Public Use
  Company Number: 253546

PATIENT
  Sex: Male

DRUGS (3)
  1. LEVEMIR [Suspect]
     Indication: DIABETES MELLITUS
     Dosage: 35 LU, SUBCUTANEOUS
     Route: 058
     Dates: start: 20060301
  2. NOVOFINE 30 (NEEDLE) [Concomitant]
  3. PLAVIX [Concomitant]

REACTIONS (1)
  - INJECTION SITE ERYTHEMA [None]
